FAERS Safety Report 4268754-5 (Version None)
Quarter: 2004Q1

REPORT INFORMATION
  Report Type: 
  Country: None (occurrence: None)
  Receive Date: 20040112
  Receipt Date: 20040112
  Transmission Date: 20041129
  Serious: Yes (Other)
  Sender: FDA-Public Use
  Company Number: None

PATIENT
  Sex: Male
  Weight: 109.3169 kg

DRUGS (15)
  1. DIAZEPAM [Suspect]
     Indication: ANXIETY
     Dosage: 5 MG BID ORAL
     Route: 048
     Dates: start: 20031210, end: 20040109
  2. ALBUTEROL [Concomitant]
  3. AMITRIPTYLINE HCL [Concomitant]
  4. ATENOLOL [Concomitant]
  5. GABAPENTIN [Concomitant]
  6. LISINOPRIL [Concomitant]
  7. METFORMIN HCL [Concomitant]
  8. HYDROXYZINE HCL [Concomitant]
  9. METHADONE HCL [Concomitant]
  10. METHOCARBAMOL [Concomitant]
  11. MINOCYCLINE HCL [Concomitant]
  12. OMEPRAZOLE [Concomitant]
  13. KCL TAB [Concomitant]
  14. WARFARIN SODIUM [Concomitant]
  15. HYDROCHLOROTHIAZIDE [Concomitant]

REACTIONS (4)
  - ATAXIA [None]
  - CONFUSIONAL STATE [None]
  - FALL [None]
  - UPPER LIMB FRACTURE [None]
